FAERS Safety Report 8896141 (Version 4)
Quarter: 2014Q1

REPORT INFORMATION
  Report Type: Spontaneous
  Country: US (occurrence: US)
  Receive Date: 20121108
  Receipt Date: 20140117
  Transmission Date: 20141002
  Serious: No
  Sender: FDA-Public Use
  Company Number: US-PFIZER INC-2012278873

PATIENT
  Age: 68 Year
  Sex: Female
  Weight: 80 kg

DRUGS (16)
  1. LYRICA [Suspect]
     Dosage: 300 MG, 2X/DAY
     Route: 048
     Dates: start: 20121130
  2. CLONAZEPAM [Concomitant]
     Dosage: 0.5 MG, 1 TABLET AT BEDTIME
     Route: 048
  3. CLONIDINE HYDROCHLORIDE [Concomitant]
     Dosage: 0.2 MG, 1X/DAY
     Route: 048
  4. FUROSEMIDE [Concomitant]
     Dosage: 40 MG, 1 TABLET DAILY AS DIRECTED
     Route: 048
     Dates: start: 20121130
  5. HYDROCODONE W/ACETAMINOPHEN [Concomitant]
     Dosage: 5-300MG, 1 TABLET EVERY 12HRS
     Route: 048
     Dates: start: 20121203
  6. METOCLOPRAMIDE HYDROCHLORIDE [Concomitant]
     Dosage: 5 MG, 3X/DAY BEFORE MEALS
     Route: 048
     Dates: start: 20121213
  7. METOPROLOL TARTRATE [Concomitant]
     Dosage: 50 MG, 2X/DAY
     Route: 048
     Dates: start: 20121130
  8. NOVOLOG MIX 70/30 [Concomitant]
     Dosage: UNK 100 UNIT/ML, 35 UNITS TWICE DAILY
     Route: 058
     Dates: start: 20121207
  9. NOVOLOG MIX 70/30 [Concomitant]
     Dosage: 32U, 2X/DAY
  10. NOVOLOG [Concomitant]
     Dosage: UNK
  11. PERCOCET [Concomitant]
     Indication: PAIN
     Dosage: 7.5-325MG, TAKE ONE TABLET AT BEDTIME AS NEEDED
     Route: 048
  12. ROPINIROLE HYDROCHLORIDE [Concomitant]
     Dosage: 1 MG, 2X/DAY
     Route: 048
     Dates: start: 20121130
  13. SPIRONOLACTONE [Concomitant]
     Dosage: 100 MG, 1X/DAY
     Route: 048
  14. SIMVASTATIN [Concomitant]
     Dosage: 40 MG, 1X/DAY (HS)
     Route: 048
  15. OMEPRAZOLE [Concomitant]
     Dosage: 20 MG, 1X/DAY
     Route: 048
  16. POTASSIUM CITRATE [Concomitant]
     Dosage: 10 MEQ, TAKE 1 TABLET DAILY
     Route: 048

REACTIONS (2)
  - Panic reaction [Unknown]
  - Drug prescribing error [Unknown]
